FAERS Safety Report 8921890 (Version 1)
Quarter: 2012Q4

REPORT INFORMATION
  Report Type: 
  Country: US (occurrence: US)
  Receive Date: 20121121
  Receipt Date: 20121121
  Transmission Date: 20130627
  Serious: No
  Sender: FDA-Public Use
  Company Number: US-PFIZER INC-2012288267

PATIENT
  Age: 11 Year
  Sex: Male
  Weight: 35.1 kg

DRUGS (4)
  1. GENOTROPIN [Suspect]
     Indication: GROWTH HORMONE DEFICIENCY
     Dosage: UNK
     Route: 058
     Dates: start: 201011, end: 201107
  2. GENOTROPIN [Suspect]
     Dosage: 1 mg, 1x/day
     Route: 058
     Dates: start: 201107, end: 201201
  3. GENOTROPIN [Suspect]
     Dosage: 1.2 mg, 1x/day
     Route: 058
     Dates: start: 201201, end: 201204
  4. GENOTROPIN [Suspect]
     Dosage: 1.6 mg, 6 days a week
     Route: 058
     Dates: start: 201204, end: 20121017

REACTIONS (3)
  - Weight decreased [Recovered/Resolved]
  - Palpitations [Unknown]
  - Chest pain [Unknown]
